FAERS Safety Report 19871318 (Version 1)
Quarter: 2021Q3

REPORT INFORMATION
  Report Type: Spontaneous
  Country: US (occurrence: US)
  Receive Date: 20210922
  Receipt Date: 20210922
  Transmission Date: 20211014
  Serious: Yes (Other)
  Sender: FDA-Public Use
  Company Number: None

PATIENT
  Age: 80 Year
  Sex: Female

DRUGS (4)
  1. ASPIRIN. [Concomitant]
     Active Substance: ASPIRIN
  2. ALLERGY [Concomitant]
     Active Substance: UNSPECIFIED INGREDIENT
  3. ACARBOSE TAB 25MG [Suspect]
     Active Substance: ACARBOSE
     Indication: TYPE 2 DIABETES MELLITUS
     Dosage: ?          QUANTITY:1 DF DOSAGE FORM;?
     Route: 048
     Dates: start: 202105, end: 202106
  4. DAILY VITAMIN [Concomitant]
     Active Substance: VITAMINS

REACTIONS (4)
  - Skin abrasion [None]
  - Blood pressure increased [None]
  - Skin exfoliation [None]
  - Blood glucose increased [None]
